FAERS Safety Report 15135240 (Version 3)
Quarter: 2019Q2

REPORT INFORMATION
  Report Type: Spontaneous
  Country: US (occurrence: US)
  Receive Date: 20180712
  Receipt Date: 20190605
  Transmission Date: 20190711
  Serious: No
  Sender: FDA-Public Use
  Company Number: US-PFIZER INC-2018281891

PATIENT
  Age: 65 Year
  Sex: Female
  Weight: 66 kg

DRUGS (6)
  1. LYRICA [Suspect]
     Active Substance: PREGABALIN
     Indication: FIBROMYALGIA
     Dosage: 150 MG, 2X/DAY
  2. LYRICA [Suspect]
     Active Substance: PREGABALIN
     Dosage: 150 MG, 3X/DAY
     Route: 048
  3. LYRICA [Suspect]
     Active Substance: PREGABALIN
     Indication: PAIN
     Dosage: 75 MG, 3X/DAY
  4. LYRICA [Suspect]
     Active Substance: PREGABALIN
     Dosage: 75 MG, UNK (QTY 45/DAYS SUPPLY 21)
  5. LYRICA [Suspect]
     Active Substance: PREGABALIN
     Dosage: 75 MG, 2X/DAY
     Dates: start: 201806
  6. LYRICA [Suspect]
     Active Substance: PREGABALIN
     Dosage: UNK
     Dates: end: 201805

REACTIONS (4)
  - Intentional product use issue [Unknown]
  - Off label use [Unknown]
  - Muscle spasms [Unknown]
  - Product use issue [Unknown]
